FAERS Safety Report 12131546 (Version 2)
Quarter: 2016Q2

REPORT INFORMATION
  Report Type: Spontaneous
  Country: FR (occurrence: FR)
  Receive Date: 20160301
  Receipt Date: 20160425
  Transmission Date: 20160815
  Serious: Yes (Hospitalization, Other)
  Sender: FDA-Public Use
  Company Number: FR-PFIZER INC-2016113403

PATIENT
  Age: 63 Year
  Sex: Female

DRUGS (1)
  1. ADVIL [Suspect]
     Active Substance: IBUPROFEN
     Indication: MUSCULOSKELETAL PAIN
     Dosage: 400 MG, SINGLE
     Route: 048
     Dates: start: 20151103, end: 20151103

REACTIONS (9)
  - Malaise [Recovered/Resolved]
  - Hypertension [Unknown]
  - Hyperhidrosis [Unknown]
  - Nausea [Recovered/Resolved]
  - Ulcer [Recovered/Resolved]
  - Loss of consciousness [Recovered/Resolved]
  - Pain [Recovered/Resolved]
  - Disease recurrence [Recovered/Resolved]
  - Condition aggravated [Recovered/Resolved]

NARRATIVE: CASE EVENT DATE: 20151104
